FAERS Safety Report 23558199 (Version 2)
Quarter: 2024Q1

REPORT INFORMATION
  Report Type: Spontaneous
  Country: US (occurrence: None)
  Receive Date: 20240223
  Receipt Date: 20240322
  Transmission Date: 20240410
  Serious: No
  Sender: FDA-Public Use
  Company Number: 2024A044231

PATIENT
  Age: 24 Year
  Sex: Male

DRUGS (1)
  1. PULMICORT RESPULES [Suspect]
     Active Substance: BUDESONIDE
     Dosage: DAILY
     Route: 055

REACTIONS (3)
  - Wheezing [Unknown]
  - Molluscum contagiosum [Unknown]
  - Eczema [Unknown]
